FAERS Safety Report 12400529 (Version 1)
Quarter: 2016Q2

REPORT INFORMATION
  Report Type: Spontaneous
  Country: CA (occurrence: None)
  Receive Date: 20160524
  Receipt Date: 20160524
  Transmission Date: 20160815
  Serious: Yes (Hospitalization)
  Sender: FDA-Public Use
  Company Number: None

PATIENT
  Age: 65 Year
  Sex: Male
  Weight: 58.97 kg

DRUGS (1)
  1. STIVARGA [Suspect]
     Active Substance: REGORAFENIB
     Indication: COLON CANCER
     Dates: start: 20160506, end: 20160509

REACTIONS (3)
  - Jaundice [None]
  - Liver disorder [None]
  - Drug ineffective [None]

NARRATIVE: CASE EVENT DATE: 20160509
